FAERS Safety Report 8380068-0 (Version None)
Quarter: 2012Q2

REPORT INFORMATION
  Report Type: 
  Country: None (occurrence: None)
  Receive Date: 20120523
  Receipt Date: 20120514
  Transmission Date: 20120825
  Serious: Yes (Death)
  Sender: FDA-Public Use
  Company Number: US-GLAXOSMITHKLINE-A0977974A

PATIENT
  Age: 53 Year
  Sex: Female

DRUGS (8)
  1. TYKERB [Suspect]
     Indication: BREAST CANCER
     Dosage: 1250MG PER DAY
     Route: 048
  2. MULTI-VITAMINS [Concomitant]
  3. ANASTROZOLE [Concomitant]
  4. DEXAMETHASONE [Concomitant]
  5. CRESTOR [Concomitant]
  6. LEVOTHYROXINE SODIUM [Concomitant]
  7. KEPPRA [Concomitant]
  8. XELODA [Concomitant]

REACTIONS (1)
  - DEATH [None]
